FAERS Safety Report 5614742-3 (Version None)
Quarter: 2008Q1

REPORT INFORMATION
  Report Type: 
  Country: None (occurrence: None)
  Receive Date: 20080205
  Receipt Date: 20080128
  Transmission Date: 20080703
  Serious: Yes (Hospitalization)
  Sender: FDA-Public Use
  Company Number: US-ELI_LILLY_AND_COMPANY-US200801006032

PATIENT
  Sex: Female

DRUGS (10)
  1. HUMULIN N [Suspect]
     Dosage: 25 U, EACH MORNING
  2. HUMULIN N [Suspect]
     Dosage: 27 U, UNK
     Dates: start: 20080101
  3. HUMULIN R [Suspect]
     Dosage: 7 U, EACH EVENING
  4. HUMULIN R [Suspect]
     Dosage: 2 U, UNK
     Dates: start: 20080101, end: 20080101
  5. NPH ILETIN I (BEEF-PORK) [Suspect]
  6. INSULIN, ANIMAL [Suspect]
  7. CORTISONE [Concomitant]
  8. PREDNISONE TAB [Concomitant]
     Dosage: 5 MG, DAILY (1/D)
     Dates: start: 20070101
  9. PREDNISONE TAB [Concomitant]
     Dosage: 4 MG, DAILY (1/D)
  10. PERCOCET [Concomitant]
     Dates: start: 20000101

REACTIONS (20)
  - BLOOD GLUCOSE DECREASED [None]
  - BLOOD GLUCOSE INCREASED [None]
  - CATARACT [None]
  - DIZZINESS [None]
  - DRUG INEFFECTIVE [None]
  - GAIT DISTURBANCE [None]
  - GASTRIC DISORDER [None]
  - GASTRIC ULCER [None]
  - HOSPITALISATION [None]
  - INTESTINAL FUNCTIONAL DISORDER [None]
  - NEUROPATHY PERIPHERAL [None]
  - PAIN [None]
  - PALPITATIONS [None]
  - POLYMYALGIA RHEUMATICA [None]
  - RED BLOOD CELL SEDIMENTATION RATE INCREASED [None]
  - RENAL IMPAIRMENT [None]
  - TREMOR [None]
  - VISION BLURRED [None]
  - VISUAL ACUITY REDUCED [None]
  - WEIGHT DECREASED [None]
